FAERS Safety Report 10748289 (Version 1)
Quarter: 2015Q1

REPORT INFORMATION
  Report Type: Spontaneous
  Country: US (occurrence: US)
  Receive Date: 20150129
  Receipt Date: 20150129
  Transmission Date: 20150721
  Serious: Yes (Death)
  Sender: FDA-Public Use
  Company Number: US-ASTRAZENECA-2014SE58748

PATIENT
  Age: 74 Year
  Sex: Female

DRUGS (22)
  1. LASIX [Concomitant]
     Active Substance: FUROSEMIDE
  2. LEVOTHYROXINE [Concomitant]
     Active Substance: LEVOTHYROXINE
  3. MUCINEX [Concomitant]
     Active Substance: GUAIFENESIN
  4. CALCIUM [Concomitant]
     Active Substance: CALCIUM
  5. BYETTA [Suspect]
     Active Substance: EXENATIDE
     Indication: TYPE 2 DIABETES MELLITUS
     Dosage: UNK
     Route: 065
     Dates: start: 200801
  6. COUMADIN [Concomitant]
     Active Substance: WARFARIN SODIUM
  7. METFORMIN [Concomitant]
     Active Substance: METFORMIN HYDROCHLORIDE
  8. LIPITOR [Concomitant]
     Active Substance: ATORVASTATIN CALCIUM
  9. INSULIN [Concomitant]
     Active Substance: INSULIN NOS
  10. AMIODARONE [Concomitant]
     Active Substance: AMIODARONE
  11. XOPENEX [Concomitant]
     Active Substance: LEVALBUTEROL HYDROCHLORIDE
  12. OMEPRAZOLE. [Concomitant]
     Active Substance: OMEPRAZOLE
  13. MAGNESIUM OXIDE. [Concomitant]
     Active Substance: MAGNESIUM OXIDE
  14. CLINDAMYCIN [Concomitant]
     Active Substance: CLINDAMYCIN\CLINDAMYCIN PHOSPHATE
  15. VITAMIN D /00107901/ [Concomitant]
     Active Substance: ERGOCALCIFEROL
  16. DILTIAZEM [Concomitant]
     Active Substance: DILTIAZEM
  17. SERAX /00040901/ [Concomitant]
  18. KEPPRA [Concomitant]
     Active Substance: LEVETIRACETAM
  19. JANUMET [Suspect]
     Active Substance: METFORMIN HYDROCHLORIDE\SITAGLIPTIN PHOSPHATE
     Indication: TYPE 2 DIABETES MELLITUS
     Dosage: UNK
     Route: 065
     Dates: start: 200801
  20. ALDACTONE [Concomitant]
     Active Substance: SPIRONOLACTONE
  21. LANTUS [Concomitant]
     Active Substance: INSULIN GLARGINE
  22. ATROVENT [Concomitant]
     Active Substance: IPRATROPIUM BROMIDE

REACTIONS (1)
  - Thyroid cancer [Fatal]

NARRATIVE: CASE EVENT DATE: 201308
